FAERS Safety Report 12909106 (Version 1)
Quarter: 2016Q4

REPORT INFORMATION
  Report Type: Spontaneous
  Country: US (occurrence: US)
  Receive Date: 20161103
  Receipt Date: 20161103
  Transmission Date: 20170207
  Serious: No
  Sender: FDA-Public Use
  Company Number: US-JAZZ-2016-US-016934

PATIENT
  Sex: Female

DRUGS (60)
  1. VITAMIN B COMPLEX [Concomitant]
     Active Substance: CYANOCOBALAMIN\DEXPANTHENOL\NIACINAMIDE\PYRIDOXINE HYDROCHLORIDE\RIBOFLAVIN 5^-PHOSPHATE SODIUM\THIAMINE HYDROCHLORIDE\VITAMIN B COMPLEX
  2. AZITHROMYCIN ANHYDROUS. [Concomitant]
     Active Substance: AZITHROMYCIN ANHYDROUS
  3. COENZYME Q10 [Concomitant]
     Active Substance: UBIDECARENONE
  4. GOLDENSEAL [Concomitant]
     Active Substance: GOLDENSEAL
  5. IVIGLOB EX [Concomitant]
     Active Substance: HUMAN IMMUNOGLOBULIN G
  6. METACYCLIN [Concomitant]
  7. MYCOBUTIN [Concomitant]
     Active Substance: RIFABUTIN
  8. OMEGA 3 [Concomitant]
     Active Substance: OMEGA-3 FATTY ACIDS
  9. PLAQUENIL [Concomitant]
     Active Substance: HYDROXYCHLOROQUINE SULFATE
  10. FLEXERIL [Concomitant]
     Active Substance: CYCLOBENZAPRINE HYDROCHLORIDE
  11. XYREM [Suspect]
     Active Substance: SODIUM OXYBATE
     Dosage: DOSE ADJUSTMENTS
     Route: 048
     Dates: start: 2010, end: 201007
  12. XYREM [Suspect]
     Active Substance: SODIUM OXYBATE
     Dosage: 4 G, SECOND DOSE
     Route: 048
     Dates: start: 201007, end: 2011
  13. XYREM [Suspect]
     Active Substance: SODIUM OXYBATE
     Dosage: 3 G, SECOND DOSE
     Route: 048
     Dates: start: 201107, end: 201108
  14. XYREM [Suspect]
     Active Substance: SODIUM OXYBATE
     Dosage: 5.5 G, BID
     Route: 048
     Dates: start: 201605
  15. KEPPRA [Concomitant]
     Active Substance: LEVETIRACETAM
  16. XIFAXAN [Concomitant]
     Active Substance: RIFAXIMIN
  17. FROVA [Concomitant]
     Active Substance: FROVATRIPTAN SUCCINATE
  18. MINOCYCLINE [Concomitant]
     Active Substance: MINOCYCLINE\MINOCYCLINE HYDROCHLORIDE
  19. PROBIOTIC [Concomitant]
     Active Substance: PROBIOTICS NOS
  20. VITAMIN B12 [Concomitant]
     Active Substance: CYANOCOBALAMIN
  21. XYREM [Suspect]
     Active Substance: SODIUM OXYBATE
     Indication: APNOEA
     Dosage: 2.25 G, BID
     Route: 048
     Dates: start: 201002, end: 2010
  22. XYREM [Suspect]
     Active Substance: SODIUM OXYBATE
     Dosage: 5 G, FIRST DOSE
     Route: 048
     Dates: start: 201007, end: 2011
  23. XYREM [Suspect]
     Active Substance: SODIUM OXYBATE
     Dosage: 2.5 G, FIRST DOSE
     Route: 048
     Dates: start: 201107, end: 201108
  24. NALTREXONE [Concomitant]
     Active Substance: NALTREXONE
  25. GLUTATHIONE [Concomitant]
     Active Substance: GLUTATHIONE
  26. AZACTAM [Concomitant]
     Active Substance: AZTREONAM
  27. CHEMET [Concomitant]
     Active Substance: SUCCIMER
  28. ROZEREM [Concomitant]
     Active Substance: RAMELTEON
  29. STROMECTOL [Concomitant]
     Active Substance: IVERMECTIN
  30. ALINIA [Concomitant]
     Active Substance: NITAZOXANIDE
  31. FIBER [Concomitant]
     Active Substance: PSYLLIUM HUSK
  32. DESMOPRESSIN ACETATE. [Concomitant]
     Active Substance: DESMOPRESSIN ACETATE
  33. POTASSIUM CL [Concomitant]
     Active Substance: POTASSIUM CHLORIDE
  34. VITAMIN D3 [Concomitant]
     Active Substance: CHOLECALCIFEROL
  35. PANCREAZE [Concomitant]
     Active Substance: PANCRELIPASE AMYLASE\PANCRELIPASE LIPASE\PANCRELIPASE PROTEASE
  36. EDTA [Concomitant]
     Active Substance: EDETIC ACID
  37. FLAGYL [Concomitant]
     Active Substance: METRONIDAZOLE\METRONIDAZOLE HYDROCHLORIDE
  38. GARLIC. [Concomitant]
     Active Substance: GARLIC
  39. IRON [Concomitant]
     Active Substance: IRON
  40. LEVOCARNITINE. [Concomitant]
     Active Substance: LEVOCARNITINE
  41. MAXALT [Concomitant]
     Active Substance: RIZATRIPTAN BENZOATE
  42. ALBENZA [Concomitant]
     Active Substance: ALBENDAZOLE
  43. XYREM [Suspect]
     Active Substance: SODIUM OXYBATE
     Dosage: DOSE ADJUSTMENTS
     Route: 048
     Dates: start: 201108, end: 201605
  44. HYDROXYCHLOROQUINE [Concomitant]
     Active Substance: HYDROXYCHLOROQUINE
  45. CAPRYLIC ACID [Concomitant]
  46. RESTASIS [Concomitant]
     Active Substance: CYCLOSPORINE
  47. VITAMIN C [Concomitant]
     Active Substance: ASCORBIC ACID
  48. CHOLESTYRAMINE. [Concomitant]
     Active Substance: CHOLESTYRAMINE
  49. HYDROCORTISONE. [Concomitant]
     Active Substance: HYDROCORTISONE
  50. FLUDROCORTISONE [Concomitant]
     Active Substance: FLUDROCORTISONE
  51. GAMUNEX-C [Concomitant]
     Active Substance: HUMAN IMMUNOGLOBULIN G
  52. MEPRON [Concomitant]
     Active Substance: ATOVAQUONE
  53. NABUMETONE. [Concomitant]
     Active Substance: NABUMETONE
  54. ARMOUR THYROID [Concomitant]
     Active Substance: THYROID, PORCINE
  55. MIDODRINE HCL [Concomitant]
     Active Substance: MIDODRINE HYDROCHLORIDE
  56. BENADRYL [Concomitant]
     Active Substance: DIPHENHYDRAMINE HYDROCHLORIDE
  57. CLONAZEPAM. [Concomitant]
     Active Substance: CLONAZEPAM
  58. LEVOTHROID [Concomitant]
     Active Substance: LEVOTHYROXINE SODIUM
  59. SELENIUM [Concomitant]
     Active Substance: SELENIUM
  60. OXYCODONE HYDROCHLORIDE. [Concomitant]
     Active Substance: OXYCODONE HYDROCHLORIDE

REACTIONS (2)
  - Osteopenia [Unknown]
  - Osteoporosis [Unknown]
